FAERS Safety Report 7505047-4 (Version None)
Quarter: 2011Q2

REPORT INFORMATION
  Report Type: 
  Country: None (occurrence: None)
  Receive Date: 20110526
  Receipt Date: 20110517
  Transmission Date: 20111010
  Serious: No
  Sender: FDA-Public Use
  Company Number: US-BIOGENIDEC-2011BI018760

PATIENT
  Age: 26 Year
  Sex: Female

DRUGS (2)
  1. YAZ [Concomitant]
     Indication: CONTRACEPTION
  2. TYSABRI [Suspect]
     Indication: CROHN'S DISEASE
     Route: 042
     Dates: start: 20080417, end: 20100618

REACTIONS (5)
  - GALLBLADDER DISORDER [None]
  - CROHN'S DISEASE [None]
  - STRESS [None]
  - COORDINATION ABNORMAL [None]
  - GASTROENTERITIS NOROVIRUS [None]
